FAERS Safety Report 4722883-8 (Version None)
Quarter: 2005Q3

REPORT INFORMATION
  Report Type: 
  Country: None (occurrence: None)
  Receive Date: 20050722
  Receipt Date: 20050617
  Transmission Date: 20060218
  Serious: Yes (Hospitalization)
  Sender: FDA-Public Use
  Company Number: PHBS2005JP08859

PATIENT
  Age: 56 Year
  Sex: Male

DRUGS (2)
  1. RITALIN [Suspect]
     Indication: DEPRESSION
     Dosage: 20 MG/D
     Route: 048
     Dates: start: 20050401
  2. SYMMETREL [Concomitant]
     Indication: DEPRESSION
     Dosage: 100 MG/D
     Route: 048
     Dates: start: 20050401

REACTIONS (1)
  - AGGRESSION [None]
